FAERS Safety Report 6772393-1 (Version None)
Quarter: 2010Q2

REPORT INFORMATION
  Report Type: 
  Country: None (occurrence: None)
  Receive Date: 20100616
  Receipt Date: 20090526
  Transmission Date: 20101027
  Serious: No
  Sender: FDA-Public Use
  Company Number: US-ASTRAZENECA-2009UW13231

PATIENT
  Age: 79 Year
  Sex: Female
  Weight: 53.5 kg

DRUGS (1)
  1. PULMICORT RESPULES [Suspect]
     Indication: ASTHMA
     Route: 055
     Dates: start: 20090521

REACTIONS (3)
  - COUGH [None]
  - SENSATION OF FOREIGN BODY [None]
  - TONGUE DISCOLOURATION [None]
